FAERS Safety Report 6131538-7 (Version None)
Quarter: 2009Q1

REPORT INFORMATION
  Report Type: 
  Country: None (occurrence: None)
  Receive Date: 20090325
  Receipt Date: 20081212
  Transmission Date: 20090719
  Serious: Yes (Life-Threatening)
  Sender: FDA-Public Use
  Company Number: US-BRISTOL-MYERS SQUIBB COMPANY-14346761

PATIENT
  Age: 59 Year
  Sex: Male

DRUGS (4)
  1. ERBITUX [Suspect]
     Indication: COLON CANCER
     Route: 042
     Dates: start: 20070908, end: 20070908
  2. BENADRYL [Concomitant]
     Route: 042
  3. DECADRON [Concomitant]
     Route: 042
  4. ZANTAC [Concomitant]
     Route: 042

REACTIONS (1)
  - ANAPHYLACTIC REACTION [None]
